FAERS Safety Report 8016494-9 (Version None)
Quarter: 2011Q4

REPORT INFORMATION
  Report Type: 
  Country: None (occurrence: None)
  Receive Date: 20111230
  Receipt Date: 20111222
  Transmission Date: 20120403
  Serious: Yes (Hospitalization, Other)
  Sender: FDA-Public Use
  Company Number: PHHY2011US112472

PATIENT
  Age: 38 Year
  Sex: Female

DRUGS (3)
  1. RANITIDINE [Suspect]
     Dosage: 150 MG, PER DAY
  2. HYDROCODONE W/ACETYLSALICYLIC ACID [Concomitant]
  3. HYDROXYCITRIC ACID [Suspect]
     Dosage: 500 MG, DILY, 5 DAYS PER WEEK

REACTIONS (3)
  - RENAL FAILURE ACUTE [None]
  - HYPERTENSION [None]
  - NEPHROPATHY [None]
